FAERS Safety Report 21822086 (Version 1)
Quarter: 2023Q1

REPORT INFORMATION
  Report Type: Spontaneous
  Country: FR (occurrence: FR)
  Receive Date: 20230105
  Receipt Date: 20230105
  Transmission Date: 20230417
  Serious: Yes (Hospitalization)
  Sender: FDA-Public Use
  Company Number: None

PATIENT
  Age: 53 Year
  Sex: Male
  Weight: 84 kg

DRUGS (1)
  1. OXALIPLATIN [Suspect]
     Active Substance: OXALIPLATIN
     Indication: Mantle cell lymphoma
     Dosage: OXALIPLATIN TEVA 5 MG/ML, UNIT DOSE: 130 MG/M2, DURATION : 1 DAY
     Route: 065
     Dates: start: 20221208, end: 20221208

REACTIONS (3)
  - Extravasation [Recovered/Resolved]
  - Formication [Recovered/Resolved]
  - Infusion site reaction [Recovered/Resolved]

NARRATIVE: CASE EVENT DATE: 20221208
